FAERS Safety Report 23313984 (Version 2)
Quarter: 2023Q4

REPORT INFORMATION
  Report Type: Spontaneous
  Country: ZA (occurrence: ZA)
  Receive Date: 20231219
  Receipt Date: 20231229
  Transmission Date: 20240110
  Serious: No
  Sender: FDA-Public Use
  Company Number: ZA-PFIZER INC-PV202300191531

PATIENT
  Age: 9 Year
  Sex: Male

DRUGS (2)
  1. GENOTROPIN [Suspect]
     Active Substance: SOMATROPIN
     Dosage: UNK
  2. GENOTROPIN [Suspect]
     Active Substance: SOMATROPIN
     Dosage: UNK
     Dates: start: 202311

REACTIONS (3)
  - Device defective [Unknown]
  - Drug dose omission by device [Unknown]
  - Device mechanical issue [Unknown]
